FAERS Safety Report 4328247-3 (Version None)
Quarter: 2004Q1

REPORT INFORMATION
  Report Type: 
  Country: None (occurrence: None)
  Receive Date: 20040319
  Receipt Date: 20040122
  Transmission Date: 20041129
  Serious: No
  Sender: FDA-Public Use
  Company Number: US-JNJFOC-20040105057

PATIENT
  Age: 26 Year
  Sex: Female
  Weight: 51.2565 kg

DRUGS (1)
  1. ORTHO EVRA [Suspect]
     Indication: CONTRACEPTION
     Dosage: 1 DOSE (S), 3 IN 4 WEEK, TRANSDERMAL
     Route: 062
     Dates: start: 20040120, end: 20040121

REACTIONS (7)
  - ABDOMINAL PAIN [None]
  - BACK PAIN [None]
  - EMOTIONAL DISORDER [None]
  - FATIGUE [None]
  - INFLUENZA LIKE ILLNESS [None]
  - MUSCLE CRAMP [None]
  - VOMITING [None]
